FAERS Safety Report 8424234-4 (Version None)
Quarter: 2012Q2

REPORT INFORMATION
  Report Type: 
  Country: None (occurrence: None)
  Receive Date: 20120608
  Receipt Date: 20111214
  Transmission Date: 20120825
  Serious: No
  Sender: FDA-Public Use
  Company Number: US-ASTRAZENECA-2011SE75831

PATIENT
  Sex: Male

DRUGS (2)
  1. PULMICORT FLEXHALER [Suspect]
     Route: 055
  2. RHINOCORT [Suspect]
     Route: 045

REACTIONS (2)
  - DYSPNOEA [None]
  - DEMENTIA ALZHEIMER'S TYPE [None]
